FAERS Safety Report 4491209-X (Version None)
Quarter: 2004Q3

REPORT INFORMATION
  Report Type: 
  Country: None (occurrence: None)
  Receive Date: 20040927
  Receipt Date: 20040805
  Transmission Date: 20050211
  Serious: No
  Sender: FDA-Public Use
  Company Number: USA040874633

PATIENT
  Age: 9 Year
  Sex: Male
  Weight: 20 kg

DRUGS (3)
  1. STRATTERA [Suspect]
     Indication: ATTENTION DEFICIT/HYPERACTIVITY DISORDER
     Dosage: 30 MG/1 DAY
     Dates: start: 20040620
  2. DEXEDRINE (DEXAMFETAMINE SULFATE) [Concomitant]
  3. KLONOPIN [Concomitant]

REACTIONS (5)
  - DISTURBANCE IN ATTENTION [None]
  - INCREASED APPETITE [None]
  - IRRITABILITY [None]
  - MOOD ALTERED [None]
  - PSYCHOMOTOR HYPERACTIVITY [None]
